FAERS Safety Report 7770882-4 (Version None)
Quarter: 2011Q3

REPORT INFORMATION
  Report Type: 
  Country: None (occurrence: None)
  Receive Date: 20110922
  Receipt Date: 20100809
  Transmission Date: 20111222
  Serious: Yes (Other)
  Sender: FDA-Public Use
  Company Number: US-ASTRAZENECA-2007UW21672

PATIENT
  Age: 489 Month
  Sex: Male
  Weight: 81.6 kg

DRUGS (12)
  1. SEROQUEL [Suspect]
     Dosage: 200MG - 1000MG
     Route: 048
     Dates: start: 20080922, end: 20091217
  2. SEROQUEL [Suspect]
     Indication: DEPRESSION
     Dosage: 200MG - 1000MG
     Route: 048
     Dates: start: 20030101, end: 20061001
  3. SEROQUEL [Suspect]
     Dosage: 200MG - 1000MG
     Route: 048
     Dates: start: 20080922, end: 20091217
  4. SEROQUEL [Suspect]
     Dosage: 500 EVERY NIGHT
     Route: 048
     Dates: start: 20060101
  5. ZYPREXA [Concomitant]
     Indication: DEPRESSION
     Dates: start: 20070601, end: 20070901
  6. ZYPREXA [Concomitant]
     Indication: SCHIZOAFFECTIVE DISORDER
     Dates: start: 20070601, end: 20070901
  7. SEROQUEL [Suspect]
     Indication: SCHIZOAFFECTIVE DISORDER
     Dosage: 200MG - 1000MG
     Route: 048
     Dates: start: 20030101, end: 20061001
  8. KLONOPIN [Concomitant]
     Dates: start: 20060512
  9. GEODON [Concomitant]
  10. SEROQUEL [Suspect]
     Dosage: 500 EVERY NIGHT
     Route: 048
     Dates: start: 20060101
  11. ABILIFY [Concomitant]
  12. ZOLOFT [Concomitant]
     Dosage: 100 EVERY MORNING
     Dates: start: 20060512

REACTIONS (10)
  - PANCREATITIS [None]
  - TYPE 2 DIABETES MELLITUS [None]
  - BLOOD TRIGLYCERIDES INCREASED [None]
  - BLOOD CHOLESTEROL INCREASED [None]
  - HYPERLIPIDAEMIA [None]
  - ABDOMINAL PAIN UPPER [None]
  - TYPE 1 DIABETES MELLITUS [None]
  - HYPERGLYCAEMIA [None]
  - DIABETIC COMPLICATION [None]
  - DYSPNOEA [None]
